FAERS Safety Report 9447898 (Version 1)
Quarter: 2013Q3

REPORT INFORMATION
  Report Type: Spontaneous
  Country: GB (occurrence: None)
  Receive Date: 20130806
  Receipt Date: 20130806
  Transmission Date: 20140515
  Serious: Yes (Other)
  Sender: FDA-Public Use
  Company Number: GB-DEXPHARM-20130462

PATIENT
  Age: 36 Year
  Sex: Female

DRUGS (7)
  1. PREGABALIN [Suspect]
     Indication: PAIN IN EXTREMITY
     Dosage: DOSE: 300 MG MILLIGRAM(S)?SEP. DOSAGES/INTERVAL 2 IN 1 DAYS
     Route: 048
  2. DIAZEPAM [Suspect]
     Dosage: 10 MG MILLIGRAM(S) SEP. DLOSAGES/INTERVAL 3 IN 1 DAYS
     Route: 048
  3. OLANZAPINE [Suspect]
     Indication: SCHIZOPHRENIA
     Dosage: 15 MG MILLIGRAM(S) SEP. DOSAGES/INTERVAL:  1 IN 1 DAYS
  4. SUBUTEX [Suspect]
     Indication: SUBSTANCE ABUSE
     Dosage: 14 MG MILLIGRAM(S) SEP. DOSAGES/INTERVAL 1 IN 1 DAYS
     Route: 060
  5. ZOPICLONE [Suspect]
     Dosage: 15 MG MILLIGRAM(S) SEP. DOSAGES/INTERVAL 1 IN 1 DAYS
     Route: 048
  6. OMEPRAZOLE [Suspect]
     Dosage: 30 MG MILLIGRAM(S)
     Route: 048
  7. DIAZEPAM [Suspect]
     Dosage: 10MG TDS INITIALLY, NOW REDUCED
     Route: 048

REACTIONS (3)
  - Drug abuse [None]
  - Maternal exposure during pregnancy [None]
  - Pregnancy [None]
